FAERS Safety Report 5207666-7 (Version None)
Quarter: 2007Q1

REPORT INFORMATION
  Report Type: 
  Country: None (occurrence: None)
  Receive Date: 20070112
  Receipt Date: 20070103
  Transmission Date: 20070707
  Serious: Yes (Hospitalization)
  Sender: FDA-Public Use
  Company Number: CA-PFIZER INC-2006151022

PATIENT
  Sex: Male
  Weight: 72.8 kg

DRUGS (9)
  1. SU-011,248 [Suspect]
     Indication: GASTROINTESTINAL STROMAL TUMOUR
     Route: 048
     Dates: start: 20060208, end: 20060427
  2. SU-011,248 [Suspect]
     Route: 048
     Dates: start: 20060531, end: 20061202
  3. LACTULOSE [Concomitant]
     Route: 048
  4. SPIRONOLACTONE [Concomitant]
     Route: 048
     Dates: start: 20050501
  5. FUROSEMIDE [Concomitant]
     Route: 048
     Dates: start: 20050501
  6. VITAMIN CAP [Concomitant]
     Route: 048
     Dates: start: 20050501
  7. EXTRA STRENGTH TYLENOL [Concomitant]
     Route: 048
     Dates: start: 20060221, end: 20060225
  8. DIMETAPP [Concomitant]
     Route: 048
     Dates: start: 20060221, end: 20060225
  9. PARIET [Concomitant]
     Route: 048
     Dates: start: 20050501

REACTIONS (2)
  - FAECES DISCOLOURED [None]
  - SPUTUM DISCOLOURED [None]
